FAERS Safety Report 9532800 (Version 2)
Quarter: 2013Q4

REPORT INFORMATION
  Report Type: Report from Study
  Country: DE (occurrence: DE)
  Receive Date: 20130918
  Receipt Date: 20131003
  Transmission Date: 20140711
  Serious: Yes (Hospitalization)
  Sender: FDA-Public Use
  Company Number: DE-ROCHE-1270951

PATIENT
  Age: 47 Year
  Sex: Male
  Weight: 62 kg

DRUGS (6)
  1. LEFLUNOMIDE [Concomitant]
     Indication: RHEUMATOID ARTHRITIS
     Route: 048
     Dates: start: 20110708
  2. ACC 600 [Concomitant]
     Indication: SINUSITIS
     Route: 048
     Dates: start: 20130528, end: 20130601
  3. RITUXIMAB [Suspect]
     Indication: RHEUMATOID ARTHRITIS
     Dosage: DAY 1
     Route: 042
     Dates: start: 20121002, end: 20121002
  4. RITUXIMAB [Suspect]
     Dosage: DAY 15
     Route: 042
     Dates: start: 20121016, end: 20121016
  5. RITUXIMAB [Suspect]
     Dosage: DAY 155
     Route: 042
     Dates: start: 20130318, end: 20130318
  6. RITUXIMAB [Suspect]
     Dosage: DAY 169
     Route: 042
     Dates: start: 20130402, end: 20130402

REACTIONS (1)
  - Nasal septal operation [Recovered/Resolved]
